FAERS Safety Report 20304088 (Version 2)
Quarter: 2022Q1

REPORT INFORMATION
  Report Type: Report from Study
  Country: US (occurrence: US)
  Receive Date: 20220106
  Receipt Date: 20220331
  Transmission Date: 20220424
  Serious: No
  Sender: FDA-Public Use
  Company Number: US-NOVARTISTESTPH-NVSC2022US001981

PATIENT
  Sex: Female

DRUGS (1)
  1. COSENTYX [Suspect]
     Active Substance: SECUKINUMAB
     Indication: Psoriasis
     Dosage: 300 MG, QW
     Route: 058
     Dates: start: 20211219

REACTIONS (4)
  - Fatigue [Recovering/Resolving]
  - COVID-19 [Recovering/Resolving]
  - Psoriasis [Not Recovered/Not Resolved]
  - Pruritus [Not Recovered/Not Resolved]
